FAERS Safety Report 8429613-7 (Version None)
Quarter: 2012Q2

REPORT INFORMATION
  Report Type: 
  Country: None (occurrence: None)
  Receive Date: 20120323
  Receipt Date: 20110422
  Transmission Date: 20120825
  Serious: Yes (Other)
  Sender: FDA-Public Use
  Company Number: 163-21880-11043039

PATIENT
  Age: 52 Year
  Sex: Female
  Weight: 65.318 kg

DRUGS (3)
  1. IVIG (IMMUNOGLOBULIN) [Concomitant]
  2. PROCRIT [Concomitant]
  3. REVLIMID [Suspect]
     Indication: MULTIPLE MYELOMA
     Dosage: 10 MG, DAILY X 21 DAYS, PO
     Route: 048
     Dates: start: 20100701, end: 20101001

REACTIONS (1)
  - BONE MARROW FAILURE [None]
